FAERS Safety Report 7575171-9 (Version None)
Quarter: 2011Q2

REPORT INFORMATION
  Report Type: 
  Country: None (occurrence: None)
  Receive Date: 20110627
  Receipt Date: 20110622
  Transmission Date: 20111010
  Serious: Yes (Other)
  Sender: FDA-Public Use
  Company Number: DE-PFIZER INC-2011138163

PATIENT
  Age: 70 Year
  Sex: Male

DRUGS (1)
  1. ATORVASTATIN CALCIUM [Suspect]
     Dosage: 40 MG, UNK
     Route: 048

REACTIONS (7)
  - DYSPNOEA [None]
  - VISUAL IMPAIRMENT [None]
  - COUGH [None]
  - MUSCULAR WEAKNESS [None]
  - DIZZINESS [None]
  - ABDOMINAL PAIN [None]
  - MYALGIA [None]
